FAERS Safety Report 18967327 (Version 2)
Quarter: 2021Q3

REPORT INFORMATION
  Report Type: Spontaneous
  Country: US (occurrence: US)
  Receive Date: 20210304
  Receipt Date: 20210818
  Transmission Date: 20211014
  Serious: Yes (Other)
  Sender: FDA-Public Use
  Company Number: US-BAYER-2021-083716

PATIENT
  Sex: Female
  Weight: 65.8 kg

DRUGS (1)
  1. MIRENA [Suspect]
     Active Substance: LEVONORGESTREL
     Indication: CONTRACEPTION
     Dosage: 20  ?G PER DAY CONTINUOUSLY
     Route: 015
     Dates: start: 2017, end: 20210305

REACTIONS (8)
  - Abdominal discomfort [Unknown]
  - Medical device pain [Unknown]
  - Complication of device removal [None]
  - Heavy menstrual bleeding [None]
  - Breast cyst [None]
  - Embedded device [Unknown]
  - Procedural pain [None]
  - Post procedural discomfort [None]

NARRATIVE: CASE EVENT DATE: 202102
